FAERS Safety Report 15499661 (Version 1)
Quarter: 2018Q4

REPORT INFORMATION
  Report Type: Spontaneous
  Country: GB (occurrence: GB)
  Receive Date: 20181015
  Receipt Date: 20181015
  Transmission Date: 20190205
  Serious: Yes (Disabling)
  Sender: FDA-Public Use
  Company Number: GB-PFIZER INC-2018410504

PATIENT
  Age: 32 Year
  Sex: Male
  Weight: 60 kg

DRUGS (6)
  1. LINEZOLID. [Suspect]
     Active Substance: LINEZOLID
     Indication: INTRA-ABDOMINAL FLUID COLLECTION
     Dosage: 1200 MG, 1X/DAY
     Route: 048
     Dates: end: 20180913
  2. CIPROXIN [CIPROFLOXACIN] [Concomitant]
     Dosage: UNK
  3. DIHYDROCODEINE [Concomitant]
     Active Substance: DIHYDROCODEINE
     Dosage: UNK
  4. LANSOPRAZOLE. [Concomitant]
     Active Substance: LANSOPRAZOLE
     Dosage: UNK
  5. HYDROCORTISONE. [Concomitant]
     Active Substance: HYDROCORTISONE
     Dosage: UNK
  6. METRONIDAZOLE. [Suspect]
     Active Substance: METRONIDAZOLE
     Indication: INTRA-ABDOMINAL FLUID COLLECTION
     Dosage: 1200 MG, 1X/DAY
     Route: 048
     Dates: end: 20180913

REACTIONS (2)
  - Peripheral sensory neuropathy [Unknown]
  - Intentional product use issue [Unknown]
